FAERS Safety Report 4611832-9 (Version None)
Quarter: 2005Q2

REPORT INFORMATION
  Report Type: 
  Country: None (occurrence: None)
  Receive Date: 20050308
  Receipt Date: 20050112
  Transmission Date: 20051028
  Serious: Yes (Other)
  Sender: FDA-Public Use
  Company Number: 2005UW00592

PATIENT
  Age: 83 Year
  Sex: Female
  Weight: 55.791 kg

DRUGS (4)
  1. CRESTOR [Suspect]
     Indication: HYPERCHOLESTEROLAEMIA
     Dosage: 10 MG PO
     Route: 048
  2. ADVAIR DISKUS 100/50 [Concomitant]
  3. FOSAMAX [Concomitant]
  4. FLONASE [Concomitant]

REACTIONS (1)
  - ALOPECIA [None]
